FAERS Safety Report 8143983-9 (Version None)
Quarter: 2012Q1

REPORT INFORMATION
  Report Type: 
  Country: None (occurrence: None)
  Receive Date: 20120217
  Receipt Date: 20120210
  Transmission Date: 20120608
  Serious: Yes (Hospitalization, Disabling, Other)
  Sender: FDA-Public Use
  Company Number: US-SANOFI-AVENTIS-2012SA009279

PATIENT
  Sex: Male

DRUGS (1)
  1. LANTUS [Suspect]
     Route: 058

REACTIONS (5)
  - DISABILITY [None]
  - CARDIAC FAILURE CONGESTIVE [None]
  - BACK DISORDER [None]
  - CATARACT [None]
  - CORONARY ARTERY DISEASE [None]
